FAERS Safety Report 5642674-3 (Version None)
Quarter: 2008Q1

REPORT INFORMATION
  Report Type: 
  Country: None (occurrence: None)
  Receive Date: 20080226
  Receipt Date: 20080218
  Transmission Date: 20080703
  Serious: Yes (Hospitalization)
  Sender: FDA-Public Use
  Company Number: E2020-02303-SPO-JP

PATIENT
  Age: 79 Year
  Sex: Female

DRUGS (10)
  1. ARICEPT [Suspect]
     Indication: DEMENTIA ALZHEIMER'S TYPE
     Dosage: 3 MG, 1 IN 1 D, ORAL
     Route: 048
     Dates: start: 20080211, end: 20080214
  2. SYMMETREL [Concomitant]
  3. OPALMON (LIMAPROST) [Concomitant]
  4. LORCAM (LORNOXICAM) [Concomitant]
  5. MUCOSTA (REBAMIPIDE) [Concomitant]
  6. ASPARA-CA (ASPARTATE CALCIUM) [Concomitant]
  7. ALFAROL (ALFACALCIDOL) [Concomitant]
  8. ONEALFA (ALFACALCIDOL) [Concomitant]
  9. CHINESE MEDICINES X 2 [Concomitant]
  10. PROPIVERINE (PROPIVERINE) [Concomitant]

REACTIONS (2)
  - FALL [None]
  - RHABDOMYOLYSIS [None]
